FAERS Safety Report 4850338-9 (Version None)
Quarter: 2005Q4

REPORT INFORMATION
  Report Type: 
  Country: None (occurrence: None)
  Receive Date: 20051123
  Receipt Date: 20051010
  Transmission Date: 20060501
  Serious: No
  Sender: FDA-Public Use
  Company Number: 218460

PATIENT
  Sex: Female

DRUGS (1)
  1. RAPTIVA [Suspect]
     Dates: start: 20051007

REACTIONS (2)
  - FLUSHING [None]
  - HEADACHE [None]
